FAERS Safety Report 19747171 (Version 1)
Quarter: 2021Q3

REPORT INFORMATION
  Report Type: Spontaneous
  Country: MY (occurrence: MY)
  Receive Date: 20210825
  Receipt Date: 20210825
  Transmission Date: 20211014
  Serious: Yes (Hospitalization)
  Sender: FDA-Public Use
  Company Number: MY-TEVA-2021-MY-1946835

PATIENT
  Age: 65 Year
  Sex: Female

DRUGS (5)
  1. LACTULOSE. [Suspect]
     Active Substance: LACTULOSE
     Indication: BOWEL MOVEMENT IRREGULARITY
     Dosage: 45 ML DAILY; THREE TIME A DAY
     Route: 065
  2. BISACODYL. [Suspect]
     Active Substance: BISACODYL
     Indication: CONSTIPATION PROPHYLAXIS
  3. LACTULOSE. [Suspect]
     Active Substance: LACTULOSE
     Indication: CONSTIPATION PROPHYLAXIS
  4. INSULIN [Concomitant]
     Active Substance: INSULIN NOS
     Indication: DIABETES MELLITUS
     Route: 065
  5. BISACODYL. [Suspect]
     Active Substance: BISACODYL
     Indication: BOWEL MOVEMENT IRREGULARITY
     Dosage: AT NIGHT AFTER THE PROCEDURE
     Route: 065

REACTIONS (5)
  - Gastrointestinal tract mucosal pigmentation [Recovering/Resolving]
  - Hypotension [Unknown]
  - Hypovolaemic shock [Recovering/Resolving]
  - Diarrhoea [Recovered/Resolved]
  - Weight decreased [Unknown]
